FAERS Safety Report 8198635-6 (Version None)
Quarter: 2012Q1

REPORT INFORMATION
  Report Type: 
  Country: None (occurrence: None)
  Receive Date: 20120309
  Receipt Date: 20120120
  Transmission Date: 20120608
  Serious: No
  Sender: FDA-Public Use
  Company Number: US-AMGEN-USASP2011069218

PATIENT
  Age: 54 Year
  Sex: Female

DRUGS (10)
  1. MULTI-VITAMIN [Concomitant]
     Dosage: UNK
  2. PROLIA [Suspect]
     Indication: OSTEOPOROSIS
     Dosage: 60 MG, Q6MO
     Dates: start: 20111011
  3. CALCIUM [Concomitant]
     Dosage: UNK
  4. VITAMIN D [Concomitant]
     Dosage: UNK
  5. AROMASIN [Concomitant]
     Indication: BREAST CANCER
     Dosage: UNK
  6. ASCORBIC ACID [Concomitant]
     Dosage: UNK
  7. FISH OIL [Concomitant]
     Dosage: UNK
  8. ASCORBIC ACID [Concomitant]
  9. ACCURETIC [Concomitant]
     Dosage: UNK
  10. ASPIRIN [Concomitant]
     Dosage: UNK

REACTIONS (2)
  - DYSURIA [None]
  - BACK PAIN [None]
